FAERS Safety Report 17055755 (Version 1)
Quarter: 2019Q4

REPORT INFORMATION
  Report Type: Spontaneous
  Country: FR (occurrence: FR)
  Receive Date: 20191120
  Receipt Date: 20191120
  Transmission Date: 20200122
  Serious: No
  Sender: FDA-Public Use
  Company Number: FR-BEH-2019109637

PATIENT
  Sex: Female

DRUGS (1)
  1. PRIVIGEN [Suspect]
     Active Substance: HUMAN IMMUNOGLOBULIN G
     Indication: SECONDARY IMMUNODEFICIENCY
     Dosage: UNK
     Route: 042
     Dates: start: 20191007, end: 20191007

REACTIONS (2)
  - Deltaretrovirus test positive [Unknown]
  - Herpes simplex test positive [Unknown]

NARRATIVE: CASE EVENT DATE: 20191109
